FAERS Safety Report 4538354-8 (Version None)
Quarter: 2004Q4

REPORT INFORMATION
  Report Type: 
  Country: None (occurrence: None)
  Receive Date: 20041221
  Receipt Date: 20041213
  Transmission Date: 20050328
  Serious: Yes (Life-Threatening)
  Sender: FDA-Public Use
  Company Number: 2004AC01006

PATIENT
  Weight: 4.3 kg

DRUGS (6)
  1. LIDOCAINE [Suspect]
     Indication: CONVULSION
     Dosage: 2 MG/KG ONCE IV
     Route: 042
  2. LIDOCAINE [Suspect]
     Indication: CONVULSION
     Dosage: 6 MG/KG/HR IV
     Route: 042
  3. PHENOBARBITAL TAB [Concomitant]
  4. MIDAZOLAM HCL [Concomitant]
  5. CLONAZEPAM [Concomitant]
  6. PYRIDOXINE HCL [Concomitant]

REACTIONS (4)
  - ARRHYTHMIA NEONATAL [None]
  - BRADYCARDIA NEONATAL [None]
  - NEONATAL TACHYCARDIA [None]
  - VENTRICULAR EXTRASYSTOLES [None]
